FAERS Safety Report 5569666-7 (Version None)
Quarter: 2007Q4

REPORT INFORMATION
  Report Type: 
  Country: None (occurrence: None)
  Receive Date: 20071220
  Receipt Date: 20071218
  Transmission Date: 20080405
  Serious: Yes (Death, Hospitalization)
  Sender: FDA-Public Use
  Company Number: B0499004A

PATIENT
  Age: 60 Year
  Sex: Female
  Weight: 79 kg

DRUGS (2)
  1. LAPATINIB [Suspect]
     Dosage: 1250MG PER DAY
     Route: 048
     Dates: start: 20071123, end: 20071201
  2. CAPECITABINE [Suspect]
     Dosage: 1800MG TWICE PER DAY
     Dates: start: 20071123, end: 20071130

REACTIONS (12)
  - ASCITES [None]
  - BONE MARROW FAILURE [None]
  - DIARRHOEA [None]
  - DIARRHOEA HAEMORRHAGIC [None]
  - HAEMATEMESIS [None]
  - JAUNDICE [None]
  - MOUTH HAEMORRHAGE [None]
  - NEUTROPENIA [None]
  - OEDEMA PERIPHERAL [None]
  - PLEURAL EFFUSION [None]
  - PROTHROMBIN TIME SHORTENED [None]
  - THROMBOCYTOPENIA [None]
